FAERS Safety Report 7734870-6 (Version None)
Quarter: 2011Q3

REPORT INFORMATION
  Report Type: 
  Country: None (occurrence: None)
  Receive Date: 20110907
  Receipt Date: 20110708
  Transmission Date: 20111222
  Serious: No
  Sender: FDA-Public Use
  Company Number: US-TYCO HEALTHCARE/MALLINCKRODT-T201101401

PATIENT
  Sex: Male

DRUGS (8)
  1. STOOL SOFTENER [Concomitant]
     Dosage: AS NEEDED
     Route: 048
  2. MS CONTIN [Concomitant]
     Dosage: 60 MG BID
     Dates: end: 20110101
  3. PERCOCET [Concomitant]
     Indication: BREAKTHROUGH PAIN
     Dosage: 3-4 TABS QD
     Route: 048
  4. EXALGO [Suspect]
     Indication: PAIN
     Dosage: 12 MG QD
     Route: 048
     Dates: start: 20110101
  5. ZANTAC                             /00550802/ [Concomitant]
     Dosage: UNK
     Route: 048
  6. MULTI-VITAMINS [Concomitant]
     Dosage: UNK
     Route: 048
  7. HUMALOG [Concomitant]
     Dosage: UNK
  8. LISINOPRIL [Concomitant]
     Dosage: UNK

REACTIONS (2)
  - FUNGAL INFECTION [None]
  - DRUG EFFECT DECREASED [None]
